FAERS Safety Report 9944844 (Version 1)
Quarter: 2014Q1

REPORT INFORMATION
  Report Type: Report from Study
  Country: US (occurrence: US)
  Receive Date: 20140303
  Receipt Date: 20140303
  Transmission Date: 20141002
  Serious: No
  Sender: FDA-Public Use
  Company Number: US-ABBVIE-13P-163-1052275-00

PATIENT
  Age: 36 Year
  Sex: Female
  Weight: 99.88 kg

DRUGS (3)
  1. HUMIRA [Suspect]
     Indication: PSORIATIC ARTHROPATHY
     Dosage: SINGLE DOSE
     Dates: start: 201212, end: 201212
  2. HUMIRA [Suspect]
     Dates: start: 20130205
  3. CITALOPRAM [Concomitant]
     Indication: DEPRESSION

REACTIONS (8)
  - Weight increased [Not Recovered/Not Resolved]
  - Pain in extremity [Recovered/Resolved]
  - Migraine [Not Recovered/Not Resolved]
  - Gait disturbance [Recovered/Resolved]
  - Increased appetite [Not Recovered/Not Resolved]
  - Sinusitis [Not Recovered/Not Resolved]
  - Nasal discomfort [Not Recovered/Not Resolved]
  - Parosmia [Not Recovered/Not Resolved]
